FAERS Safety Report 6388605-2 (Version None)
Quarter: 2009Q3

REPORT INFORMATION
  Report Type: 
  Country: None (occurrence: None)
  Receive Date: 20090930
  Receipt Date: 20090916
  Transmission Date: 20100115
  Serious: Yes (Death)
  Sender: FDA-Public Use
  Company Number: 2009EU003618

PATIENT
  Age: 43 Year
  Sex: Female

DRUGS (3)
  1. PROGRAF [Suspect]
     Indication: RENAL TRANSPLANT
     Dosage: 4 MG, BID
  2. CELLCEPT [Suspect]
     Indication: RENAL TRANSPLANT
     Dosage: 1 G, BID
  3. PREDNISOLONE [Suspect]
     Indication: RENAL TRANSPLANT
     Dosage: 15 MG, UID/QD

REACTIONS (8)
  - ABDOMINAL DISTENSION [None]
  - CONSTIPATION [None]
  - COUGH [None]
  - HAEMOPTYSIS [None]
  - INFECTION IN AN IMMUNOCOMPROMISED HOST [None]
  - NAUSEA [None]
  - RASH [None]
  - STRONGYLOIDIASIS [None]
